FAERS Safety Report 5152659-1 (Version None)
Quarter: 2006Q4

REPORT INFORMATION
  Report Type: 
  Country: None (occurrence: None)
  Receive Date: 20061109
  Receipt Date: 20061027
  Transmission Date: 20070319
  Serious: Yes (Other)
  Sender: FDA-Public Use
  Company Number: 2006133133

PATIENT
  Age: 67 Year
  Sex: Male
  Weight: 117.9352 kg

DRUGS (11)
  1. TIKOSYN [Suspect]
     Indication: ATRIAL FIBRILLATION
     Dosage: 0.5 MG (0.25 MG, 2 IN 1 D)
     Dates: start: 20030301
  2. OMNICEF [Suspect]
     Indication: URINARY TRACT INFECTION
     Dosage: 600 MG (300 MG, 2 IN 1 D)
     Dates: start: 20060101, end: 20060101
  3. WARFARIN SODIUM [Concomitant]
  4. AVODART [Concomitant]
  5. CRANBERRY (VACCINIUM MACROCARPON) [Concomitant]
  6. DIOVAN [Concomitant]
  7. FLOMAX ^CHIESI^ (MORNIFLUMATE) [Concomitant]
  8. FOLIC ACID [Concomitant]
  9. HYDROCHLOROTHIAZIDE [Concomitant]
  10. METOPROLOL TARTRATE [Concomitant]
  11. GLIPIZIDE [Concomitant]

REACTIONS (4)
  - BLOOD GLUCOSE INCREASED [None]
  - PARAESTHESIA [None]
  - PROTHROMBIN TIME PROLONGED [None]
  - URINARY TRACT INFECTION [None]
